FAERS Safety Report 23028421 (Version 1)
Quarter: 2023Q4

REPORT INFORMATION
  Report Type: Spontaneous
  Country: US (occurrence: None)
  Receive Date: 20231004
  Receipt Date: 20231004
  Transmission Date: 20240109
  Serious: Yes (Death, Other)
  Sender: FDA-Public Use
  Company Number: US-ENDO-CASE-0031304

PATIENT
  Sex: Male

DRUGS (16)
  1. OPANA ER [Suspect]
     Active Substance: OXYMORPHONE HYDROCHLORIDE
  2. ENDOCET [Suspect]
     Active Substance: ACETAMINOPHEN\OXYCODONE HYDROCHLORIDE
  3. TRAMADOL HYDROCHLORIDE [Suspect]
     Active Substance: TRAMADOL HYDROCHLORIDE
  4. PERCOCET [Suspect]
     Active Substance: ACETAMINOPHEN\OXYCODONE HYDROCHLORIDE
  5. ACETAMINOPHEN\OXYCODONE HYDROCHLORIDE [Suspect]
     Active Substance: ACETAMINOPHEN\OXYCODONE HYDROCHLORIDE
  6. METHADONE [Suspect]
     Active Substance: METHADONE HYDROCHLORIDE
  7. ROXICODONE [Suspect]
     Active Substance: OXYCODONE HYDROCHLORIDE
  8. OXYCODONE [Suspect]
     Active Substance: OXYCODONE
  9. HYDROCODONE BITARTRATE\IBUPROFEN [Suspect]
     Active Substance: HYDROCODONE BITARTRATE\IBUPROFEN
  10. PROMETHAZINE HYDROCHLORIDE AND CODEINE PHOSPHATE [Suspect]
     Active Substance: CODEINE PHOSPHATE\PROMETHAZINE HYDROCHLORIDE
  11. MORPHINE SULFATE [Suspect]
     Active Substance: MORPHINE SULFATE
  12. CODEINE PHOSPHATE\GUAIFENESIN [Suspect]
     Active Substance: CODEINE PHOSPHATE\GUAIFENESIN
  13. FENTANYL CITRATE [Suspect]
     Active Substance: FENTANYL CITRATE
  14. ACETAMINOPHEN AND CODEINE [Suspect]
     Active Substance: ACETAMINOPHEN\CODEINE PHOSPHATE
  15. OPANA [Suspect]
     Active Substance: OXYMORPHONE HYDROCHLORIDE
  16. GUAIFENESIN\HYDROCODONE BITARTRATE [Suspect]
     Active Substance: GUAIFENESIN\HYDROCODONE BITARTRATE

REACTIONS (4)
  - Death [Fatal]
  - Dependence [Unknown]
  - Cerebrovascular accident [Unknown]
  - Neoplasm malignant [Unknown]
